FAERS Safety Report 13303864 (Version 1)
Quarter: 2017Q1

REPORT INFORMATION
  Report Type: Spontaneous
  Country: IT (occurrence: IT)
  Receive Date: 20170307
  Receipt Date: 20170307
  Transmission Date: 20170428
  Serious: Yes (Other)
  Sender: FDA-Public Use
  Company Number: IT-MYLANLABS-2017M1013975

PATIENT

DRUGS (1)
  1. ESOMEPRAZOLO MYLAN 20 MG CAPSULE RIGIDE GASTRORESISTENTI [Suspect]
     Active Substance: ESOMEPRAZOLE
     Indication: GASTRITIS
     Dosage: 40 MG, QD
     Route: 048
     Dates: start: 20160817, end: 20161004

REACTIONS (5)
  - Dyspepsia [Recovered/Resolved with Sequelae]
  - Hepatic pain [Recovered/Resolved with Sequelae]
  - Gastrointestinal disorder [Recovered/Resolved with Sequelae]
  - Abdominal distension [Recovered/Resolved with Sequelae]
  - Withdrawal hepatitis [Recovered/Resolved with Sequelae]

NARRATIVE: CASE EVENT DATE: 20160817
